FAERS Safety Report 16886799 (Version 1)
Quarter: 2019Q4

REPORT INFORMATION
  Report Type: Spontaneous
  Country: US (occurrence: US)
  Receive Date: 20191004
  Receipt Date: 20191004
  Transmission Date: 20200122
  Serious: Yes (Other)
  Sender: FDA-Public Use
  Company Number: US-SHIRE-US201931197

PATIENT

DRUGS (1)
  1. 426 (MIDODRINE) [Suspect]
     Active Substance: MIDODRINE
     Indication: HYPOTENSION
     Dosage: UNK
     Route: 048

REACTIONS (2)
  - Intestinal ischaemia [Unknown]
  - Intentional product use issue [Unknown]
